FAERS Safety Report 13584479 (Version 4)
Quarter: 2017Q3

REPORT INFORMATION
  Report Type: Report from Study
  Country: MX (occurrence: MX)
  Receive Date: 20170526
  Receipt Date: 20170725
  Transmission Date: 20171127
  Serious: Yes (Hospitalization)
  Sender: FDA-Public Use
  Company Number: MX-ROCHE-1936906

PATIENT
  Age: 57 Year
  Sex: Female
  Weight: 55.8 kg

DRUGS (16)
  1. DIMETICONE [Concomitant]
     Active Substance: DIMETHICONE
     Indication: DIARRHOEA
     Route: 048
     Dates: start: 20170426
  2. SERETIDE [Concomitant]
     Active Substance: FLUTICASONE PROPIONATE\SALMETEROL XINAFOATE
     Indication: INTERSTITIAL LUNG DISEASE
     Route: 050
     Dates: start: 20160406
  3. MAGALDRATE [Concomitant]
     Active Substance: MAGALDRATE
     Indication: GASTROOESOPHAGEAL REFLUX DISEASE
     Dosage: PRN (AS NEEDED)
     Route: 048
     Dates: start: 20161206
  4. PANTOZOL (MEXICO) [Concomitant]
     Indication: GASTROOESOPHAGEAL REFLUX DISEASE
     Route: 048
     Dates: start: 20160713
  5. FLUOXETINE [Concomitant]
     Active Substance: FLUOXETINE HYDROCHLORIDE
     Indication: MAJOR DEPRESSION
     Route: 048
     Dates: start: 20161207
  6. CIPROFLOXACINE [Concomitant]
     Active Substance: CIPROFLOXACIN
     Indication: SCLERODERMA
  7. SPIRIVA [Concomitant]
     Active Substance: TIOTROPIUM BROMIDE MONOHYDRATE
     Indication: INTERSTITIAL LUNG DISEASE
     Route: 050
     Dates: start: 20160406
  8. CIPROFLOXACINE [Concomitant]
     Active Substance: CIPROFLOXACIN
     Indication: DIARRHOEA
  9. CIPROFLOXACINE [Concomitant]
     Active Substance: CIPROFLOXACIN
     Indication: OVERGROWTH BACTERIAL
  10. PREDNISONE. [Concomitant]
     Active Substance: PREDNISONE
     Indication: SCLERODERMA
     Route: 048
     Dates: start: 20160406
  11. LOSARTAN. [Concomitant]
     Active Substance: LOSARTAN
     Indication: RAYNAUD^S PHENOMENON
     Route: 048
     Dates: start: 20161010
  12. CIPROFLOXACINE [Concomitant]
     Active Substance: CIPROFLOXACIN
     Indication: URINARY TRACT INFECTION
     Route: 048
     Dates: start: 20161010
  13. TYLEX (MEXICO) [Concomitant]
     Indication: ARTHRALGIA
     Dosage: PRN (AS NEEDED)
     Route: 048
     Dates: start: 20170426
  14. SALMETEROL [Concomitant]
     Active Substance: SALMETEROL
     Indication: INTERSTITIAL LUNG DISEASE
     Route: 050
     Dates: start: 20160406
  15. ALEVIAN DUO [Concomitant]
     Indication: DIARRHOEA
     Dosage: PRN (AS NEEDED)
     Route: 048
     Dates: start: 20170426
  16. TOCILIZUMAB. [Suspect]
     Active Substance: TOCILIZUMAB
     Indication: SYSTEMIC SCLERODERMA
     Dosage: DATE OF MOST RECENT DOSE OF BLINDED STUDY DRUG PRIOR TO AE ONSET: 11/MAY/2017
     Route: 058
     Dates: start: 20160817

REACTIONS (1)
  - Pelvic inflammatory disease [Recovered/Resolved]

NARRATIVE: CASE EVENT DATE: 20170513
